FAERS Safety Report 17461836 (Version 4)
Quarter: 2021Q4

REPORT INFORMATION
  Report Type: Spontaneous
  Country: GR (occurrence: GR)
  Receive Date: 20200226
  Receipt Date: 20211026
  Transmission Date: 20220303
  Serious: Yes (Hospitalization)
  Sender: FDA-Public Use
  Company Number: 2020SE24464

PATIENT
  Sex: Female
  Weight: 60 kg

DRUGS (181)
  1. LOSEC [Suspect]
     Active Substance: OMEPRAZOLE
     Indication: Non-Hodgkin^s lymphoma
     Dosage: 1 CYCLES TWICE
     Route: 048
     Dates: start: 20191223, end: 20200113
  2. LOSEC [Suspect]
     Active Substance: OMEPRAZOLE
     Indication: Anaemia
     Dosage: 1 CYCLES TWICE
     Route: 048
     Dates: start: 20191223, end: 20200113
  3. LOSEC [Suspect]
     Active Substance: OMEPRAZOLE
     Indication: Diffuse large B-cell lymphoma
     Dosage: 1 CYCLES TWICE
     Route: 048
     Dates: start: 20191223, end: 20200113
  4. LOSEC [Suspect]
     Active Substance: OMEPRAZOLE
     Indication: Hypertension
     Dosage: 1 CYCLES TWICE
     Route: 048
     Dates: start: 20191223, end: 20200113
  5. LOSEC [Suspect]
     Active Substance: OMEPRAZOLE
     Indication: Leukopenia
     Dosage: 1 CYCLES TWICE
     Route: 048
     Dates: start: 20191223, end: 20200113
  6. MEROPENEM [Suspect]
     Active Substance: MEROPENEM
     Indication: Non-Hodgkin^s lymphoma
     Dosage: 1 CYCLE 2G X 32.0G UNKNOWN
     Route: 042
     Dates: start: 20200103, end: 20200113
  7. CUBICIN [Suspect]
     Active Substance: DAPTOMYCIN
     Indication: Non-Hodgkin^s lymphoma
     Dosage: 350 MG 1 CYCLE
     Route: 042
     Dates: start: 20200102, end: 20200113
  8. CUBICIN [Suspect]
     Active Substance: DAPTOMYCIN
     Indication: Hypertension
     Dosage: 350 MG 1 CYCLE
     Route: 042
     Dates: start: 20200102, end: 20200113
  9. CUBICIN [Suspect]
     Active Substance: DAPTOMYCIN
     Indication: Leukopenia
     Dosage: 350 MG 1 CYCLE
     Route: 042
     Dates: start: 20200102, end: 20200113
  10. CUBICIN [Suspect]
     Active Substance: DAPTOMYCIN
     Indication: Anaemia
     Dosage: 350 MG 1 CYCLE
     Route: 042
     Dates: start: 20200102, end: 20200113
  11. CUBICIN [Suspect]
     Active Substance: DAPTOMYCIN
     Indication: Diffuse large B-cell lymphoma
     Dosage: 350 MG 1 CYCLE
     Route: 042
     Dates: start: 20200102, end: 20200113
  12. CUBICIN [Suspect]
     Active Substance: DAPTOMYCIN
     Indication: Non-Hodgkin^s lymphoma
     Dosage: UNKNOWN
     Route: 065
  13. CUBICIN [Suspect]
     Active Substance: DAPTOMYCIN
     Indication: Hypertension
     Dosage: UNKNOWN
     Route: 065
  14. CUBICIN [Suspect]
     Active Substance: DAPTOMYCIN
     Indication: Leukopenia
     Dosage: UNKNOWN
     Route: 065
  15. CUBICIN [Suspect]
     Active Substance: DAPTOMYCIN
     Indication: Anaemia
     Dosage: UNKNOWN
     Route: 065
  16. CUBICIN [Suspect]
     Active Substance: DAPTOMYCIN
     Indication: Diffuse large B-cell lymphoma
     Dosage: UNKNOWN
     Route: 065
  17. ERYTHROPOIETIN [Suspect]
     Active Substance: ERYTHROPOIETIN
     Indication: Anaemia
     Dosage: 1 CYCLE
     Route: 058
     Dates: start: 20190523, end: 20200124
  18. CANCIDAS [Suspect]
     Active Substance: CASPOFUNGIN ACETATE
     Indication: Non-Hodgkin^s lymphoma
     Dosage: 50.0MG UNKNOWN
     Route: 042
     Dates: start: 20200105, end: 20200113
  19. RITUXIMAB [Suspect]
     Active Substance: RITUXIMAB
     Indication: Diffuse large B-cell lymphoma
     Dosage: 2 CYCLES
     Route: 042
     Dates: start: 20191113, end: 20191223
  20. RITUXIMAB [Suspect]
     Active Substance: RITUXIMAB
     Indication: Diffuse large B-cell lymphoma
     Dosage: 8 CYCLES
     Route: 042
     Dates: start: 20190513, end: 20191013
  21. RITUXIMAB [Suspect]
     Active Substance: RITUXIMAB
     Indication: Diffuse large B-cell lymphoma
     Dosage: 3 CYCLES
     Route: 058
     Dates: start: 20190513, end: 20190625
  22. RITUXIMAB [Suspect]
     Active Substance: RITUXIMAB
     Indication: Diffuse large B-cell lymphoma
     Dosage: 1400 MILLIGRAM, 1 CYCLE
     Route: 058
     Dates: start: 20191113, end: 20191210
  23. ALDACTONE [Suspect]
     Active Substance: SPIRONOLACTONE
     Indication: Non-Hodgkin^s lymphoma
     Dosage: 100 MG 1 CYCLE
     Route: 048
     Dates: start: 20200105, end: 20200112
  24. ALDACTONE [Suspect]
     Active Substance: SPIRONOLACTONE
     Indication: Anaemia
     Dosage: 100 MG 1 CYCLE
     Route: 048
     Dates: start: 20200105, end: 20200112
  25. ALDACTONE [Suspect]
     Active Substance: SPIRONOLACTONE
     Indication: Hypertension
     Dosage: 100 MG 1 CYCLE
     Route: 048
     Dates: start: 20200105, end: 20200112
  26. ALDACTONE [Suspect]
     Active Substance: SPIRONOLACTONE
     Indication: Diffuse large B-cell lymphoma
     Dosage: 100 MG 1 CYCLE
     Route: 048
     Dates: start: 20200105, end: 20200112
  27. ALDACTONE [Suspect]
     Active Substance: SPIRONOLACTONE
     Indication: Leukopenia
     Dosage: 100 MG 1 CYCLE
     Route: 048
     Dates: start: 20200105, end: 20200112
  28. ALDACTONE [Suspect]
     Active Substance: SPIRONOLACTONE
     Indication: Non-Hodgkin^s lymphoma
     Dosage: UNKNOWN
     Route: 065
  29. ALDACTONE [Suspect]
     Active Substance: SPIRONOLACTONE
     Indication: Anaemia
     Dosage: UNKNOWN
     Route: 065
  30. ALDACTONE [Suspect]
     Active Substance: SPIRONOLACTONE
     Indication: Hypertension
     Dosage: UNKNOWN
     Route: 065
  31. ALDACTONE [Suspect]
     Active Substance: SPIRONOLACTONE
     Indication: Diffuse large B-cell lymphoma
     Dosage: UNKNOWN
     Route: 065
  32. ALDACTONE [Suspect]
     Active Substance: SPIRONOLACTONE
     Indication: Leukopenia
     Dosage: UNKNOWN
     Route: 065
  33. MABTHERA [Suspect]
     Active Substance: RITUXIMAB
     Indication: Non-Hodgkin^s lymphoma
     Dosage: 1400 MG 6 CYCLES
     Route: 058
     Dates: start: 20190625, end: 20191009
  34. MABTHERA [Suspect]
     Active Substance: RITUXIMAB
     Indication: Hypertension
     Dosage: 1400 MG 6 CYCLES
     Route: 058
     Dates: start: 20190625, end: 20191009
  35. MABTHERA [Suspect]
     Active Substance: RITUXIMAB
     Indication: Anaemia
     Dosage: 1400 MG 6 CYCLES
     Route: 058
     Dates: start: 20190625, end: 20191009
  36. MABTHERA [Suspect]
     Active Substance: RITUXIMAB
     Indication: Leukopenia
     Dosage: 1400 MG 6 CYCLES
     Route: 058
     Dates: start: 20190625, end: 20191009
  37. MABTHERA [Suspect]
     Active Substance: RITUXIMAB
     Indication: Diffuse large B-cell lymphoma
     Dosage: 1400 MG 6 CYCLES
     Route: 058
     Dates: start: 20190625, end: 20191009
  38. MABTHERA [Suspect]
     Active Substance: RITUXIMAB
     Indication: Non-Hodgkin^s lymphoma
     Dosage: 1400 MG 1 CYCLES
     Route: 058
     Dates: start: 20191113, end: 20191210
  39. MABTHERA [Suspect]
     Active Substance: RITUXIMAB
     Indication: Hypertension
     Dosage: 1400 MG 1 CYCLES
     Route: 058
     Dates: start: 20191113, end: 20191210
  40. MABTHERA [Suspect]
     Active Substance: RITUXIMAB
     Indication: Anaemia
     Dosage: 1400 MG 1 CYCLES
     Route: 058
     Dates: start: 20191113, end: 20191210
  41. MABTHERA [Suspect]
     Active Substance: RITUXIMAB
     Indication: Leukopenia
     Dosage: 1400 MG 1 CYCLES
     Route: 058
     Dates: start: 20191113, end: 20191210
  42. MABTHERA [Suspect]
     Active Substance: RITUXIMAB
     Indication: Diffuse large B-cell lymphoma
     Dosage: 1400 MG 1 CYCLES
     Route: 058
     Dates: start: 20191113, end: 20191210
  43. MABTHERA [Suspect]
     Active Substance: RITUXIMAB
     Indication: Non-Hodgkin^s lymphoma
     Dosage: 650 MG 1 CYCLES
     Route: 058
     Dates: start: 20191222, end: 20200113
  44. MABTHERA [Suspect]
     Active Substance: RITUXIMAB
     Indication: Hypertension
     Dosage: 650 MG 1 CYCLES
     Route: 058
     Dates: start: 20191222, end: 20200113
  45. MABTHERA [Suspect]
     Active Substance: RITUXIMAB
     Indication: Anaemia
     Dosage: 650 MG 1 CYCLES
     Route: 058
     Dates: start: 20191222, end: 20200113
  46. MABTHERA [Suspect]
     Active Substance: RITUXIMAB
     Indication: Leukopenia
     Dosage: 650 MG 1 CYCLES
     Route: 058
     Dates: start: 20191222, end: 20200113
  47. MABTHERA [Suspect]
     Active Substance: RITUXIMAB
     Indication: Diffuse large B-cell lymphoma
     Dosage: 650 MG 1 CYCLES
     Route: 058
     Dates: start: 20191222, end: 20200113
  48. NORVASC [Suspect]
     Active Substance: AMLODIPINE BESYLATE
     Indication: Hypertension
     Dosage: UNKNOWN
     Route: 048
  49. NORVASC [Suspect]
     Active Substance: AMLODIPINE BESYLATE
     Indication: Anaemia
     Dosage: UNKNOWN
     Route: 048
  50. NORVASC [Suspect]
     Active Substance: AMLODIPINE BESYLATE
     Indication: Leukopenia
     Dosage: UNKNOWN
     Route: 048
  51. NORVASC [Suspect]
     Active Substance: AMLODIPINE BESYLATE
     Indication: Diffuse large B-cell lymphoma
     Dosage: UNKNOWN
     Route: 048
  52. NORVASC [Suspect]
     Active Substance: AMLODIPINE BESYLATE
     Indication: Non-Hodgkin^s lymphoma
     Dosage: UNKNOWN
     Route: 048
  53. NORVASC [Suspect]
     Active Substance: AMLODIPINE BESYLATE
     Indication: Hypertension
     Dosage: 5 MG, 1 CYCLE
     Route: 048
     Dates: start: 20190515, end: 20190516
  54. NORVASC [Suspect]
     Active Substance: AMLODIPINE BESYLATE
     Indication: Anaemia
     Dosage: 5 MG, 1 CYCLE
     Route: 048
     Dates: start: 20190515, end: 20190516
  55. NORVASC [Suspect]
     Active Substance: AMLODIPINE BESYLATE
     Indication: Leukopenia
     Dosage: 5 MG, 1 CYCLE
     Route: 048
     Dates: start: 20190515, end: 20190516
  56. NORVASC [Suspect]
     Active Substance: AMLODIPINE BESYLATE
     Indication: Diffuse large B-cell lymphoma
     Dosage: 5 MG, 1 CYCLE
     Route: 048
     Dates: start: 20190515, end: 20190516
  57. NORVASC [Suspect]
     Active Substance: AMLODIPINE BESYLATE
     Indication: Non-Hodgkin^s lymphoma
     Dosage: 5 MG, 1 CYCLE
     Route: 048
     Dates: start: 20190515, end: 20190516
  58. DOXORUBICIN [Suspect]
     Active Substance: DOXORUBICIN
     Indication: Non-Hodgkin^s lymphoma
     Dosage: 75 MILLIGRAM, 8 CYCLES75.0MG UNKNOWN
     Route: 042
     Dates: start: 20190513, end: 20191009
  59. DOXORUBICIN [Suspect]
     Active Substance: DOXORUBICIN
     Indication: Diffuse large B-cell lymphoma
     Dosage: 75 MILLIGRAM, 8 CYCLES75.0MG UNKNOWN
     Route: 042
     Dates: start: 20190513, end: 20191009
  60. DOXORUBICIN [Suspect]
     Active Substance: DOXORUBICIN
     Indication: Non-Hodgkin^s lymphoma
     Dosage: UNKNOWN
     Route: 058
  61. DOXORUBICIN [Suspect]
     Active Substance: DOXORUBICIN
     Indication: Diffuse large B-cell lymphoma
     Dosage: UNKNOWN
     Route: 058
  62. HYALURONIDASE (HUMAN RECOMBINANT)\RITUXIMAB [Suspect]
     Active Substance: HYALURONIDASE (HUMAN RECOMBINANT)\RITUXIMAB
     Indication: Diffuse large B-cell lymphoma
     Dosage: 3 CYCLES
     Route: 058
     Dates: start: 20190513, end: 20190625
  63. CISPLATIN [Suspect]
     Active Substance: CISPLATIN
     Indication: Non-Hodgkin^s lymphoma
     Dosage: 38 MG 2 CYCLES
     Route: 042
     Dates: start: 20191119, end: 20200113
  64. CISPLATIN [Suspect]
     Active Substance: CISPLATIN
     Indication: Diffuse large B-cell lymphoma
     Dosage: 38 MG 2 CYCLES
     Route: 042
     Dates: start: 20191119, end: 20200113
  65. CISPLATIN [Suspect]
     Active Substance: CISPLATIN
     Indication: Non-Hodgkin^s lymphoma
     Route: 042
  66. CISPLATIN [Suspect]
     Active Substance: CISPLATIN
     Indication: Diffuse large B-cell lymphoma
     Route: 042
  67. FILGRASTIM [Suspect]
     Active Substance: FILGRASTIM
     Indication: Leukopenia
     Route: 058
     Dates: start: 20190523, end: 20200117
  68. FILGRASTIM [Suspect]
     Active Substance: FILGRASTIM
     Indication: Non-Hodgkin^s lymphoma
     Route: 058
     Dates: start: 20190523, end: 20200117
  69. FILGRASTIM [Suspect]
     Active Substance: FILGRASTIM
     Indication: Diffuse large B-cell lymphoma
     Route: 058
     Dates: start: 20190523, end: 20200117
  70. FILGRASTIM [Suspect]
     Active Substance: FILGRASTIM
     Indication: Anaemia
     Route: 058
     Dates: start: 20190523, end: 20200117
  71. FILGRASTIM [Suspect]
     Active Substance: FILGRASTIM
     Indication: Hypertension
     Route: 058
     Dates: start: 20190523, end: 20200117
  72. CYTARABINE [Suspect]
     Active Substance: CYTARABINE
     Indication: Non-Hodgkin^s lymphoma
     Dosage: 3 G 2 CYCLES
     Route: 042
     Dates: start: 20191123, end: 20200113
  73. CYTARABINE [Suspect]
     Active Substance: CYTARABINE
     Indication: Diffuse large B-cell lymphoma
     Dosage: 3 G 2 CYCLES
     Route: 042
     Dates: start: 20191123, end: 20200113
  74. CYTARABINE [Suspect]
     Active Substance: CYTARABINE
     Indication: Non-Hodgkin^s lymphoma
     Route: 042
  75. CYTARABINE [Suspect]
     Active Substance: CYTARABINE
     Indication: Diffuse large B-cell lymphoma
     Route: 042
  76. CISPLATIN\CYTARABINE\ETOPOSIDE\METHYLPREDNISOLONE (ESHAP) [Suspect]
     Active Substance: CISPLATIN\CYTARABINE\ETOPOSIDE\METHYLPREDNISOLONE (ESHAP)
     Indication: Diffuse large B-cell lymphoma
     Dosage: 2 CYCLES
     Route: 065
     Dates: start: 20191113, end: 20191223
  77. CYCLOPHOSPHAMIDE\DOXORUBICIN\PREDNISONE\VINCRISTINE [Suspect]
     Active Substance: CYCLOPHOSPHAMIDE\DOXORUBICIN\PREDNISONE\VINCRISTINE
     Indication: Diffuse large B-cell lymphoma
     Dosage: 8 CYCLES
     Route: 065
     Dates: start: 20190513, end: 20191013
  78. RITUXIMAB [Suspect]
     Active Substance: RITUXIMAB
     Indication: Diffuse large B-cell lymphoma
     Dosage: 8 CYCLES
     Route: 042
     Dates: start: 20190513, end: 20191013
  79. RITUXIMAB [Suspect]
     Active Substance: RITUXIMAB
     Indication: Diffuse large B-cell lymphoma
     Dosage: 2 CYCLES
     Route: 042
     Dates: start: 20191113, end: 20191223
  80. CHLORPHENIRAMINE MALEATE [Suspect]
     Active Substance: CHLORPHENIRAMINE MALEATE
     Indication: Non-Hodgkin^s lymphoma
     Dosage: 1 CYCLE
     Route: 048
     Dates: start: 20200110, end: 20200112
  81. CHLORPHENIRAMINE MALEATE [Suspect]
     Active Substance: CHLORPHENIRAMINE MALEATE
     Indication: Non-Hodgkin^s lymphoma
     Route: 048
  82. ALBUMIN HUMAN [Suspect]
     Active Substance: ALBUMIN HUMAN
     Indication: Non-Hodgkin^s lymphoma
     Dosage: 1 CYLCE 50MG X2
     Route: 042
     Dates: start: 20200110, end: 20200113
  83. ALBUMIN HUMAN [Suspect]
     Active Substance: ALBUMIN HUMAN
     Indication: Hypertension
     Dosage: 1 CYLCE 50MG X2
     Route: 042
     Dates: start: 20200110, end: 20200113
  84. ALBUMIN HUMAN [Suspect]
     Active Substance: ALBUMIN HUMAN
     Indication: Anaemia
     Dosage: 1 CYLCE 50MG X2
     Route: 042
     Dates: start: 20200110, end: 20200113
  85. ALBUMIN HUMAN [Suspect]
     Active Substance: ALBUMIN HUMAN
     Indication: Leukopenia
     Dosage: 1 CYLCE 50MG X2
     Route: 042
     Dates: start: 20200110, end: 20200113
  86. ALBUMIN HUMAN [Suspect]
     Active Substance: ALBUMIN HUMAN
     Indication: Diffuse large B-cell lymphoma
     Dosage: 1 CYLCE 50MG X2
     Route: 042
     Dates: start: 20200110, end: 20200113
  87. VALTREX [Suspect]
     Active Substance: VALACYCLOVIR HYDROCHLORIDE
     Indication: Non-Hodgkin^s lymphoma
     Dosage: 500 G, 1 CYCLE
     Route: 048
     Dates: start: 20200108, end: 20200113
  88. VALTREX [Suspect]
     Active Substance: VALACYCLOVIR HYDROCHLORIDE
     Indication: Anaemia
     Dosage: 500 G, 1 CYCLE
     Route: 048
     Dates: start: 20200108, end: 20200113
  89. VALTREX [Suspect]
     Active Substance: VALACYCLOVIR HYDROCHLORIDE
     Indication: Hypertension
     Dosage: 500 G, 1 CYCLE
     Route: 048
     Dates: start: 20200108, end: 20200113
  90. VALTREX [Suspect]
     Active Substance: VALACYCLOVIR HYDROCHLORIDE
     Indication: Leukopenia
     Dosage: 500 G, 1 CYCLE
     Route: 048
     Dates: start: 20200108, end: 20200113
  91. VALTREX [Suspect]
     Active Substance: VALACYCLOVIR HYDROCHLORIDE
     Indication: Diffuse large B-cell lymphoma
     Dosage: 500 G, 1 CYCLE
     Route: 048
     Dates: start: 20200108, end: 20200113
  92. VALTREX [Suspect]
     Active Substance: VALACYCLOVIR HYDROCHLORIDE
     Indication: Non-Hodgkin^s lymphoma
     Dosage: 500 MILLIGRAM500.0MG UNKNOWN
     Route: 048
     Dates: start: 20190513, end: 20190516
  93. VALTREX [Suspect]
     Active Substance: VALACYCLOVIR HYDROCHLORIDE
     Indication: Anaemia
     Dosage: 500 MILLIGRAM500.0MG UNKNOWN
     Route: 048
     Dates: start: 20190513, end: 20190516
  94. VALTREX [Suspect]
     Active Substance: VALACYCLOVIR HYDROCHLORIDE
     Indication: Hypertension
     Dosage: 500 MILLIGRAM500.0MG UNKNOWN
     Route: 048
     Dates: start: 20190513, end: 20190516
  95. VALTREX [Suspect]
     Active Substance: VALACYCLOVIR HYDROCHLORIDE
     Indication: Leukopenia
     Dosage: 500 MILLIGRAM500.0MG UNKNOWN
     Route: 048
     Dates: start: 20190513, end: 20190516
  96. VALTREX [Suspect]
     Active Substance: VALACYCLOVIR HYDROCHLORIDE
     Indication: Diffuse large B-cell lymphoma
     Dosage: 500 MILLIGRAM500.0MG UNKNOWN
     Route: 048
     Dates: start: 20190513, end: 20190516
  97. VALTREX [Suspect]
     Active Substance: VALACYCLOVIR HYDROCHLORIDE
     Indication: Non-Hodgkin^s lymphoma
     Dosage: UNKNOWN UNKNOWN
     Route: 048
  98. VALTREX [Suspect]
     Active Substance: VALACYCLOVIR HYDROCHLORIDE
     Indication: Anaemia
     Dosage: UNKNOWN UNKNOWN
     Route: 048
  99. VALTREX [Suspect]
     Active Substance: VALACYCLOVIR HYDROCHLORIDE
     Indication: Hypertension
     Dosage: UNKNOWN UNKNOWN
     Route: 048
  100. VALTREX [Suspect]
     Active Substance: VALACYCLOVIR HYDROCHLORIDE
     Indication: Leukopenia
     Dosage: UNKNOWN UNKNOWN
     Route: 048
  101. VALTREX [Suspect]
     Active Substance: VALACYCLOVIR HYDROCHLORIDE
     Indication: Diffuse large B-cell lymphoma
     Dosage: UNKNOWN UNKNOWN
     Route: 048
  102. VALTREX [Suspect]
     Active Substance: VALACYCLOVIR HYDROCHLORIDE
     Indication: Non-Hodgkin^s lymphoma
     Dosage: UNKNOWN
     Route: 058
  103. VALTREX [Suspect]
     Active Substance: VALACYCLOVIR HYDROCHLORIDE
     Indication: Anaemia
     Dosage: UNKNOWN
     Route: 058
  104. VALTREX [Suspect]
     Active Substance: VALACYCLOVIR HYDROCHLORIDE
     Indication: Hypertension
     Dosage: UNKNOWN
     Route: 058
  105. VALTREX [Suspect]
     Active Substance: VALACYCLOVIR HYDROCHLORIDE
     Indication: Leukopenia
     Dosage: UNKNOWN
     Route: 058
  106. VALTREX [Suspect]
     Active Substance: VALACYCLOVIR HYDROCHLORIDE
     Indication: Diffuse large B-cell lymphoma
     Dosage: UNKNOWN
     Route: 058
  107. VALTREX [Suspect]
     Active Substance: VALACYCLOVIR HYDROCHLORIDE
     Indication: Non-Hodgkin^s lymphoma
     Dosage: UNKNOWN UNKNOWN
     Route: 065
  108. VALTREX [Suspect]
     Active Substance: VALACYCLOVIR HYDROCHLORIDE
     Indication: Anaemia
     Dosage: UNKNOWN UNKNOWN
     Route: 065
  109. VALTREX [Suspect]
     Active Substance: VALACYCLOVIR HYDROCHLORIDE
     Indication: Hypertension
     Dosage: UNKNOWN UNKNOWN
     Route: 065
  110. VALTREX [Suspect]
     Active Substance: VALACYCLOVIR HYDROCHLORIDE
     Indication: Leukopenia
     Dosage: UNKNOWN UNKNOWN
     Route: 065
  111. VALTREX [Suspect]
     Active Substance: VALACYCLOVIR HYDROCHLORIDE
     Indication: Diffuse large B-cell lymphoma
     Dosage: UNKNOWN UNKNOWN
     Route: 065
  112. DOXORUBICIN [Suspect]
     Active Substance: DOXORUBICIN
     Indication: Non-Hodgkin^s lymphoma
     Route: 058
  113. LASIX [Suspect]
     Active Substance: FUROSEMIDE
     Indication: Non-Hodgkin^s lymphoma
     Dosage: 1 CYCLE
     Route: 042
     Dates: start: 20200110, end: 20200113
  114. LASIX [Suspect]
     Active Substance: FUROSEMIDE
     Indication: Hypertension
     Dosage: 1 CYCLE
     Route: 042
     Dates: start: 20200110, end: 20200113
  115. LASIX [Suspect]
     Active Substance: FUROSEMIDE
     Indication: Leukopenia
     Dosage: 1 CYCLE
     Route: 042
     Dates: start: 20200110, end: 20200113
  116. LASIX [Suspect]
     Active Substance: FUROSEMIDE
     Indication: Anaemia
     Dosage: 1 CYCLE
     Route: 042
     Dates: start: 20200110, end: 20200113
  117. LASIX [Suspect]
     Active Substance: FUROSEMIDE
     Indication: Diffuse large B-cell lymphoma
     Dosage: 1 CYCLE
     Route: 042
     Dates: start: 20200110, end: 20200113
  118. LASIX [Suspect]
     Active Substance: FUROSEMIDE
     Indication: Non-Hodgkin^s lymphoma
     Dosage: UNKNOWN
     Route: 065
  119. LASIX [Suspect]
     Active Substance: FUROSEMIDE
     Indication: Hypertension
     Dosage: UNKNOWN
     Route: 065
  120. LASIX [Suspect]
     Active Substance: FUROSEMIDE
     Indication: Leukopenia
     Dosage: UNKNOWN
     Route: 065
  121. LASIX [Suspect]
     Active Substance: FUROSEMIDE
     Indication: Anaemia
     Dosage: UNKNOWN
     Route: 065
  122. LASIX [Suspect]
     Active Substance: FUROSEMIDE
     Indication: Diffuse large B-cell lymphoma
     Dosage: UNKNOWN
     Route: 065
  123. VEPESID [Suspect]
     Active Substance: ETOPOSIDE
     Indication: Non-Hodgkin^s lymphoma
     Dosage: 90 MG 2 CYCLE90.0MG UNKNOWN
     Route: 042
     Dates: start: 20191119, end: 20200113
  124. VEPESID [Suspect]
     Active Substance: ETOPOSIDE
     Indication: Hypertension
     Dosage: 90 MG 2 CYCLE90.0MG UNKNOWN
     Route: 042
     Dates: start: 20191119, end: 20200113
  125. VEPESID [Suspect]
     Active Substance: ETOPOSIDE
     Indication: Anaemia
     Dosage: 90 MG 2 CYCLE90.0MG UNKNOWN
     Route: 042
     Dates: start: 20191119, end: 20200113
  126. VEPESID [Suspect]
     Active Substance: ETOPOSIDE
     Indication: Leukopenia
     Dosage: 90 MG 2 CYCLE90.0MG UNKNOWN
     Route: 042
     Dates: start: 20191119, end: 20200113
  127. VEPESID [Suspect]
     Active Substance: ETOPOSIDE
     Indication: Diffuse large B-cell lymphoma
     Dosage: 90 MG 2 CYCLE90.0MG UNKNOWN
     Route: 042
     Dates: start: 20191119, end: 20200113
  128. VEPESID [Suspect]
     Active Substance: ETOPOSIDE
     Indication: Non-Hodgkin^s lymphoma
     Dosage: UNKNOWN
     Route: 042
  129. VEPESID [Suspect]
     Active Substance: ETOPOSIDE
     Indication: Hypertension
     Dosage: UNKNOWN
     Route: 042
  130. VEPESID [Suspect]
     Active Substance: ETOPOSIDE
     Indication: Anaemia
     Dosage: UNKNOWN
     Route: 042
  131. VEPESID [Suspect]
     Active Substance: ETOPOSIDE
     Indication: Leukopenia
     Dosage: UNKNOWN
     Route: 042
  132. VEPESID [Suspect]
     Active Substance: ETOPOSIDE
     Indication: Diffuse large B-cell lymphoma
     Dosage: UNKNOWN
     Route: 042
  133. VEPESID [Suspect]
     Active Substance: ETOPOSIDE
     Indication: Non-Hodgkin^s lymphoma
     Dosage: UNKNOWN UNKNOWN
     Route: 058
  134. VEPESID [Suspect]
     Active Substance: ETOPOSIDE
     Indication: Hypertension
     Dosage: UNKNOWN UNKNOWN
     Route: 058
  135. VEPESID [Suspect]
     Active Substance: ETOPOSIDE
     Indication: Anaemia
     Dosage: UNKNOWN UNKNOWN
     Route: 058
  136. VEPESID [Suspect]
     Active Substance: ETOPOSIDE
     Indication: Leukopenia
     Dosage: UNKNOWN UNKNOWN
     Route: 058
  137. VEPESID [Suspect]
     Active Substance: ETOPOSIDE
     Indication: Diffuse large B-cell lymphoma
     Dosage: UNKNOWN UNKNOWN
     Route: 058
  138. VEPESID [Suspect]
     Active Substance: ETOPOSIDE
     Indication: Non-Hodgkin^s lymphoma
     Dosage: UNKNOWN UNKNOWN
     Route: 065
  139. VEPESID [Suspect]
     Active Substance: ETOPOSIDE
     Indication: Hypertension
     Dosage: UNKNOWN UNKNOWN
     Route: 065
  140. VEPESID [Suspect]
     Active Substance: ETOPOSIDE
     Indication: Anaemia
     Dosage: UNKNOWN UNKNOWN
     Route: 065
  141. VEPESID [Suspect]
     Active Substance: ETOPOSIDE
     Indication: Leukopenia
     Dosage: UNKNOWN UNKNOWN
     Route: 065
  142. VEPESID [Suspect]
     Active Substance: ETOPOSIDE
     Indication: Diffuse large B-cell lymphoma
     Dosage: UNKNOWN UNKNOWN
     Route: 065
  143. VINCRISTINE SULFATE [Suspect]
     Active Substance: VINCRISTINE SULFATE
     Indication: Hypertension
     Dosage: UNKNOWN
     Route: 065
  144. VINCRISTINE SULFATE [Suspect]
     Active Substance: VINCRISTINE SULFATE
     Indication: Anaemia
     Dosage: UNKNOWN
     Route: 065
  145. VINCRISTINE SULFATE [Suspect]
     Active Substance: VINCRISTINE SULFATE
     Indication: Leukopenia
     Dosage: UNKNOWN
     Route: 065
  146. VINCRISTINE SULFATE [Suspect]
     Active Substance: VINCRISTINE SULFATE
     Indication: Diffuse large B-cell lymphoma
     Dosage: UNKNOWN
     Route: 065
  147. VINCRISTINE SULFATE [Suspect]
     Active Substance: VINCRISTINE SULFATE
     Indication: Non-Hodgkin^s lymphoma
     Dosage: UNKNOWN
     Route: 065
  148. RITUXAN [Suspect]
     Active Substance: RITUXIMAB
     Dosage: UNKNOWN
     Route: 065
  149. METHYLPREDNISOLONE [Suspect]
     Active Substance: METHYLPREDNISOLONE
     Indication: Diffuse large B-cell lymphoma
     Dosage: UNKNOWN
     Route: 065
  150. VALACYCLOVIR HYDROCHLORIDE [Suspect]
     Active Substance: VALACYCLOVIR HYDROCHLORIDE
     Dosage: UNKNOWN
     Route: 065
  151. ERYTHROPOIETIN [Suspect]
     Active Substance: ERYTHROPOIETIN
     Indication: Anaemia
     Dosage: UNKNOWN
     Route: 065
  152. ERYTHROPOIETIN [Suspect]
     Active Substance: ERYTHROPOIETIN
     Indication: Leukopenia
     Dosage: UNKNOWN
     Route: 065
  153. ERYTHROPOIETIN [Suspect]
     Active Substance: ERYTHROPOIETIN
     Indication: Hypertension
     Dosage: UNKNOWN
     Route: 065
  154. ERYTHROPOIETIN [Suspect]
     Active Substance: ERYTHROPOIETIN
     Indication: Diffuse large B-cell lymphoma
     Dosage: UNKNOWN
     Route: 065
  155. ERYTHROPOIETIN [Suspect]
     Active Substance: ERYTHROPOIETIN
     Indication: Non-Hodgkin^s lymphoma
     Dosage: UNKNOWN
     Route: 065
  156. DAPTOMYCIN [Suspect]
     Active Substance: DAPTOMYCIN
     Dosage: UNKNOWN
     Route: 065
  157. CHLORPHENIRAMINE MALEATE [Suspect]
     Active Substance: CHLORPHENIRAMINE MALEATE
     Indication: Anaemia
     Dosage: 1 CYCLE
     Route: 065
     Dates: start: 20200610, end: 20200612
  158. CHLORPHENIRAMINE MALEATE [Suspect]
     Active Substance: CHLORPHENIRAMINE MALEATE
     Indication: Leukopenia
     Dosage: 1 CYCLE
     Route: 065
     Dates: start: 20200610, end: 20200612
  159. CHLORPHENIRAMINE MALEATE [Suspect]
     Active Substance: CHLORPHENIRAMINE MALEATE
     Indication: Hypertension
     Dosage: 1 CYCLE
     Route: 065
     Dates: start: 20200610, end: 20200612
  160. CHLORPHENIRAMINE MALEATE [Suspect]
     Active Substance: CHLORPHENIRAMINE MALEATE
     Indication: Non-Hodgkin^s lymphoma
     Dosage: 1 CYCLE
     Route: 065
     Dates: start: 20200610, end: 20200612
  161. CHLORPHENIRAMINE MALEATE [Suspect]
     Active Substance: CHLORPHENIRAMINE MALEATE
     Indication: Diffuse large B-cell lymphoma
     Dosage: 1 CYCLE
     Route: 065
     Dates: start: 20200610, end: 20200612
  162. CYTARABINE [Suspect]
     Active Substance: CYTARABINE
     Indication: Leukopenia
     Dosage: UNKNOWN
     Route: 065
  163. CYTARABINE [Suspect]
     Active Substance: CYTARABINE
     Indication: Hypertension
     Dosage: UNKNOWN
     Route: 065
  164. CYTARABINE [Suspect]
     Active Substance: CYTARABINE
     Indication: Anaemia
     Dosage: UNKNOWN
     Route: 065
  165. CYTARABINE [Suspect]
     Active Substance: CYTARABINE
     Indication: Non-Hodgkin^s lymphoma
     Dosage: UNKNOWN
     Route: 065
  166. CYTARABINE [Suspect]
     Active Substance: CYTARABINE
     Indication: Diffuse large B-cell lymphoma
     Dosage: UNKNOWN
     Route: 065
  167. PREDNISONE [Suspect]
     Active Substance: PREDNISONE
     Indication: Leukopenia
     Dosage: UNKNOWN
     Route: 065
  168. PREDNISONE [Suspect]
     Active Substance: PREDNISONE
     Indication: Hypertension
     Dosage: UNKNOWN
     Route: 065
  169. PREDNISONE [Suspect]
     Active Substance: PREDNISONE
     Indication: Anaemia
     Dosage: UNKNOWN
     Route: 065
  170. PREDNISONE [Suspect]
     Active Substance: PREDNISONE
     Indication: Non-Hodgkin^s lymphoma
     Dosage: UNKNOWN
     Route: 065
  171. PREDNISONE [Suspect]
     Active Substance: PREDNISONE
     Indication: Diffuse large B-cell lymphoma
     Dosage: UNKNOWN
     Route: 065
  172. CYCLOPHOSPHAMIDE [Suspect]
     Active Substance: CYCLOPHOSPHAMIDE
     Indication: Leukopenia
     Dosage: UNKNOWN
     Route: 065
  173. CYCLOPHOSPHAMIDE [Suspect]
     Active Substance: CYCLOPHOSPHAMIDE
     Indication: Hypertension
     Dosage: UNKNOWN
     Route: 065
  174. CYCLOPHOSPHAMIDE [Suspect]
     Active Substance: CYCLOPHOSPHAMIDE
     Indication: Anaemia
     Dosage: UNKNOWN
     Route: 065
  175. CYCLOPHOSPHAMIDE [Suspect]
     Active Substance: CYCLOPHOSPHAMIDE
     Indication: Non-Hodgkin^s lymphoma
     Dosage: UNKNOWN
     Route: 065
  176. CYCLOPHOSPHAMIDE [Suspect]
     Active Substance: CYCLOPHOSPHAMIDE
     Indication: Diffuse large B-cell lymphoma
     Dosage: UNKNOWN
     Route: 065
  177. DOXORUBICIN HYDROCHLORIDE [Suspect]
     Active Substance: DOXORUBICIN HYDROCHLORIDE
     Indication: Leukopenia
     Dosage: UNKNOWN
     Route: 065
  178. DOXORUBICIN HYDROCHLORIDE [Suspect]
     Active Substance: DOXORUBICIN HYDROCHLORIDE
     Indication: Anaemia
     Dosage: UNKNOWN
     Route: 065
  179. DOXORUBICIN HYDROCHLORIDE [Suspect]
     Active Substance: DOXORUBICIN HYDROCHLORIDE
     Indication: Hypertension
     Dosage: UNKNOWN
     Route: 065
  180. DOXORUBICIN HYDROCHLORIDE [Suspect]
     Active Substance: DOXORUBICIN HYDROCHLORIDE
     Indication: Diffuse large B-cell lymphoma
     Dosage: UNKNOWN
     Route: 065
  181. DOXORUBICIN HYDROCHLORIDE [Suspect]
     Active Substance: DOXORUBICIN HYDROCHLORIDE
     Indication: Non-Hodgkin^s lymphoma
     Dosage: UNKNOWN
     Route: 065

REACTIONS (5)
  - Diffuse large B-cell lymphoma refractory [Unknown]
  - Disease progression [Unknown]
  - Product use in unapproved indication [Unknown]
  - Off label use [Unknown]
  - No adverse event [Unknown]
